FAERS Safety Report 5314450-2 (Version None)
Quarter: 2007Q2

REPORT INFORMATION
  Report Type: 
  Country: None (occurrence: None)
  Receive Date: 20070502
  Receipt Date: 20070423
  Transmission Date: 20071010
  Serious: Yes (Hospitalization)
  Sender: FDA-Public Use
  Company Number: US-AMGEN-STX212489

PATIENT
  Sex: Female
  Weight: 52.7 kg

DRUGS (8)
  1. ENBREL [Suspect]
     Indication: RHEUMATOID ARTHRITIS
     Route: 058
     Dates: start: 20050825
  2. METHOTREXATE [Suspect]
     Route: 065
     Dates: start: 20040101
  3. ACTONEL [Concomitant]
  4. NEURONTIN [Concomitant]
  5. FOLIC ACID [Concomitant]
  6. ASPIRIN [Concomitant]
  7. TRIAZOLAM [Concomitant]
  8. TYLENOL [Concomitant]

REACTIONS (7)
  - CELLULITIS [None]
  - COUGH [None]
  - HEADACHE [None]
  - INFLUENZA [None]
  - OSTEOARTHRITIS [None]
  - OSTEOMYELITIS [None]
  - STAPHYLOCOCCAL INFECTION [None]
